FAERS Safety Report 16876733 (Version 2)
Quarter: 2019Q4

REPORT INFORMATION
  Report Type: Spontaneous
  Country: US (occurrence: US)
  Receive Date: 20191002
  Receipt Date: 20191002
  Transmission Date: 20200122
  Serious: Yes (Other)
  Sender: FDA-Public Use
  Company Number: US-AMGEN-US144716

PATIENT
  Age: 52 Year
  Sex: Female

DRUGS (2)
  1. ETANERCEPT [Suspect]
     Active Substance: ETANERCEPT
     Indication: ANKYLOSING SPONDYLITIS
     Dosage: 25 MILLIGRAM, 2 TIMES/WK
     Route: 065
     Dates: start: 200307
  2. ETANERCEPT [Suspect]
     Active Substance: ETANERCEPT
     Dosage: 25 MILLIGRAM, QWK
     Route: 065
     Dates: start: 200307

REACTIONS (2)
  - Uveitis [Recovered/Resolved]
  - Drug ineffective [Unknown]

NARRATIVE: CASE EVENT DATE: 2004
